FAERS Safety Report 14068570 (Version 1)
Quarter: 2017Q4

REPORT INFORMATION
  Report Type: Spontaneous
  Country: US (occurrence: US)
  Receive Date: 20171010
  Receipt Date: 20171010
  Transmission Date: 20180321
  Serious: No
  Sender: FDA-Public Use
  Company Number: US-PFIZER INC-2017432832

PATIENT
  Sex: Male
  Weight: 90.72 kg

DRUGS (5)
  1. AMBIEN [Concomitant]
     Active Substance: ZOLPIDEM TARTRATE
     Indication: SLEEP DISORDER
     Dosage: 10MG ONCE AT NIGHT
  2. LYRICA [Suspect]
     Active Substance: PREGABALIN
     Indication: DYSKINESIA
  3. LYRICA [Suspect]
     Active Substance: PREGABALIN
     Indication: SCIATIC NERVE INJURY
     Dosage: 150 MG, 1X/DAY
     Route: 048
     Dates: start: 2005
  4. SIMVASTATIN. [Concomitant]
     Active Substance: SIMVASTATIN
     Indication: BLOOD CHOLESTEROL
     Dosage: 20 MG, 1X/DAY
     Route: 048
  5. LORTAB [Concomitant]
     Active Substance: ACETAMINOPHEN\HYDROCODONE BITARTRATE
     Dosage: 10 MG, AS NEEDED (ONCE DAILY)
     Route: 048

REACTIONS (1)
  - Drug ineffective [Not Recovered/Not Resolved]
